FAERS Safety Report 4487744-0 (Version None)
Quarter: 2004Q4

REPORT INFORMATION
  Report Type: 
  Country: None (occurrence: None)
  Receive Date: 20041025
  Receipt Date: 20041011
  Transmission Date: 20050328
  Serious: Yes (Hospitalization)
  Sender: FDA-Public Use
  Company Number: 200411775BCC

PATIENT
  Age: 68 Year
  Sex: Female
  Weight: 74.8435 kg

DRUGS (4)
  1. ALEVE [Suspect]
     Indication: ARTHRITIS
     Dates: start: 19950101
  2. FELDENE [Concomitant]
  3. IMIPRAM TAB [Concomitant]
  4. RITALIN [Concomitant]

REACTIONS (8)
  - ASTHENIA [None]
  - CHEST PAIN [None]
  - DUODENAL ULCER HAEMORRHAGE [None]
  - DYSPNOEA [None]
  - HAEMOGLOBIN DECREASED [None]
  - HYPERHIDROSIS [None]
  - ILEUS [None]
  - PAIN [None]
